FAERS Safety Report 7532882 (Version 2)
Quarter: 2012Q4

REPORT INFORMATION
  Report Type: Spontaneous
  Country: US (occurrence: None)
  Receive Date: 20100727
  Receipt Date: 20120927
  Transmission Date: 20130627
  Serious: Yes (Other)
  Sender: FDA-Public Use
  Company Number: 2010MA000806

PATIENT
  Sex: Female
  Weight: 82.1 kg

DRUGS (13)
  1. METOCLOPRAMIDE [Suspect]
     Indication: DYSPHAGIA
     Dosage: PO
     Route: 048
     Dates: start: 20080730, end: 20081129
  2. METOCLOPRAMIDE [Suspect]
     Indication: DYSPHAGIA
  3. ASPIRINE [Concomitant]
  4. BENICAR [Concomitant]
  5. ALLOPURINOL [Concomitant]
  6. DOXYCYCLINE [Concomitant]
  7. ULTRAM [Concomitant]
  8. MEGESTROL [Concomitant]
  9. PROPOXYPHENE [Concomitant]
  10. NAPROXEN [Concomitant]
  11. ZOLPIDEM [Concomitant]
  12. TEMAZEPAM [Concomitant]
  13. ARICEPT [Concomitant]

REACTIONS (16)
  - Tardive dyskinesia [None]
  - Extrapyramidal disorder [None]
  - Economic problem [None]
  - Emotional distress [None]
  - Movement disorder [None]
  - Intentional drug misuse [None]
  - Intervertebral disc degeneration [None]
  - Weight decreased [None]
  - Cholelithiasis [None]
  - Biliary dilatation [None]
  - Hiatus hernia [None]
  - Tremor [None]
  - Tremor [None]
  - Insomnia [None]
  - Decreased appetite [None]
  - Sinusitis [None]
